FAERS Safety Report 24681453 (Version 2)
Quarter: 2025Q3

REPORT INFORMATION
  Report Type: Spontaneous
  Country: GB (occurrence: GB)
  Receive Date: 20241129
  Receipt Date: 20250924
  Transmission Date: 20251020
  Serious: Yes (Other)
  Sender: ABBVIE
  Company Number: None

PATIENT
  Age: 35 Year
  Sex: Female

DRUGS (1)
  1. ATOGEPANT [Suspect]
     Active Substance: ATOGEPANT
     Indication: Migraine prophylaxis
     Route: 048
     Dates: start: 20241121, end: 20241125

REACTIONS (4)
  - Eye swelling [Unknown]
  - Dermatitis allergic [Recovered/Resolved]
  - Eye discharge [Unknown]
  - Swelling face [Unknown]

NARRATIVE: CASE EVENT DATE: 20241122
